FAERS Safety Report 5087065-1 (Version None)
Quarter: 2006Q3

REPORT INFORMATION
  Report Type: 
  Country: None (occurrence: None)
  Receive Date: 20060821
  Receipt Date: 20060517
  Transmission Date: 20061208
  Serious: Yes (Life-Threatening)
  Sender: FDA-Public Use
  Company Number: 2006097800

PATIENT
  Age: 24 Year
  Sex: Female

DRUGS (12)
  1. CEFPODOXIME PROXETIL [Suspect]
     Indication: BRONCHITIS
     Dosage: ORAL
  2. CEFPODOXIME PROXETIL [Suspect]
     Indication: EAR INFECTION
     Dosage: ORAL
  3. CEFPODOXIME PROXETIL [Suspect]
     Indication: PHARYNGITIS
     Dosage: ORAL
  4. CAFFEINE/DEXTROPOXYPHENE/PARACETAMOL (CAFFEINE, DEXTROPROPOXYPHENE, PA [Suspect]
     Indication: HEADACHE
     Dosage: 914 MG TO 1828 MG, ORAL
     Route: 048
     Dates: start: 20060310, end: 20060317
  5. CAFFEINE/DEXTROPOXYPHENE/PARACETAMOL (CAFFEINE, DEXTROPROPOXYPHENE, PA [Suspect]
     Indication: INFLUENZA
     Dosage: 914 MG TO 1828 MG, ORAL
     Route: 048
     Dates: start: 20060310, end: 20060317
  6. CAFFEINE/DEXTROPOXYPHENE/PARACETAMOL (CAFFEINE, DEXTROPROPOXYPHENE, PA [Suspect]
     Indication: MYALGIA
     Dosage: 914 MG TO 1828 MG, ORAL
     Route: 048
     Dates: start: 20060310, end: 20060317
  7. CAFFEINE/DEXTROPOXYPHENE/PARACETAMOL (CAFFEINE, DEXTROPROPOXYPHENE, PA [Suspect]
     Indication: HEADACHE
     Dosage: 914 MG TO 1828 MG, ORAL
     Route: 048
     Dates: start: 20060318, end: 20060318
  8. CAFFEINE/DEXTROPOXYPHENE/PARACETAMOL (CAFFEINE, DEXTROPROPOXYPHENE, PA [Suspect]
     Indication: INFLUENZA
     Dosage: 914 MG TO 1828 MG, ORAL
     Route: 048
     Dates: start: 20060318, end: 20060318
  9. CAFFEINE/DEXTROPOXYPHENE/PARACETAMOL (CAFFEINE, DEXTROPROPOXYPHENE, PA [Suspect]
     Indication: MYALGIA
     Dosage: 914 MG TO 1828 MG, ORAL
     Route: 048
     Dates: start: 20060318, end: 20060318
  10. RHINOTROPHYL (ETHANOLAMINE TENOATE, FRAMYCETIN SULFATE) [Suspect]
     Indication: BRONCHITIS
     Dosage: NASAL
     Route: 045
  11. RHINOTROPHYL (ETHANOLAMINE TENOATE, FRAMYCETIN SULFATE) [Suspect]
     Indication: EAR INFECTION
     Dosage: NASAL
     Route: 045
  12. RHINOTROPHYL (ETHANOLAMINE TENOATE, FRAMYCETIN SULFATE) [Suspect]
     Indication: PHARYNGITIS
     Dosage: NASAL
     Route: 045

REACTIONS (14)
  - ABDOMINAL PAIN UPPER [None]
  - ALANINE AMINOTRANSFERASE INCREASED [None]
  - ASPARTATE AMINOTRANSFERASE INCREASED [None]
  - BRONCHITIS [None]
  - COAGULATION FACTOR V LEVEL DECREASED [None]
  - DIABETIC KETOACIDOSIS [None]
  - DISCOMFORT [None]
  - EAR INFECTION [None]
  - HEPATIC TRAUMA [None]
  - LIVER DISORDER [None]
  - PHARYNGITIS [None]
  - PROTHROMBIN TIME SHORTENED [None]
  - SELF-MEDICATION [None]
  - VOMITING [None]
